FAERS Safety Report 16285306 (Version 1)
Quarter: 2019Q2

REPORT INFORMATION
  Report Type: Spontaneous
  Country: US (occurrence: US)
  Receive Date: 20190506
  Receipt Date: 20190506
  Transmission Date: 20190711
  Serious: No
  Sender: FDA-Public Use
  Company Number: None

PATIENT
  Age: 97 Year
  Sex: Male
  Weight: 88.3 kg

DRUGS (1)
  1. TALIMOGENE LAHERPAREPVEC [Suspect]
     Active Substance: TALIMOGENE LAHERPAREPVEC
     Indication: MALIGNANT MELANOMA
     Dosage: ?          OTHER FREQUENCY:ONCE;?
     Route: 026
     Dates: start: 20190425, end: 20190425

REACTIONS (1)
  - Expired product administered [None]

NARRATIVE: CASE EVENT DATE: 20190425
